FAERS Safety Report 5516885-1 (Version None)
Quarter: 2007Q4

REPORT INFORMATION
  Report Type: 
  Country: None (occurrence: None)
  Receive Date: 20071109
  Receipt Date: 20071101
  Transmission Date: 20080405
  Serious: Yes (Hospitalization)
  Sender: FDA-Public Use
  Company Number: L07-UKI-05273-01

PATIENT
  Age: 47 Year
  Sex: Female

DRUGS (1)
  1. CITALOPRAM [Suspect]
     Indication: DEPRESSION

REACTIONS (11)
  - BLOOD PH DECREASED [None]
  - BLOOD PRESSURE INCREASED [None]
  - CHEMICAL POISONING [None]
  - HYPOTHERMIA [None]
  - METABOLIC ACIDOSIS [None]
  - NEUTROPHILIA [None]
  - PCO2 DECREASED [None]
  - PO2 INCREASED [None]
  - RESPIRATORY DISTRESS [None]
  - SINUS TACHYCARDIA [None]
  - WHITE BLOOD CELL COUNT INCREASED [None]
